FAERS Safety Report 6769952-9 (Version None)
Quarter: 2010Q2

REPORT INFORMATION
  Report Type: 
  Country: None (occurrence: None)
  Receive Date: 20100615
  Receipt Date: 20100531
  Transmission Date: 20101027
  Serious: Yes (Death, Hospitalization)
  Sender: FDA-Public Use
  Company Number: B0653108A

PATIENT
  Sex: Female
  Weight: 65 kg

DRUGS (9)
  1. LAMICTAL [Suspect]
     Indication: EPILEPSY
     Route: 048
     Dates: start: 20100201, end: 20100323
  2. PHENYTOIN SODIUM CAP [Suspect]
     Indication: DRUG USE FOR UNKNOWN INDICATION
     Route: 065
  3. ZESTRIL [Concomitant]
     Indication: HYPERTENSION
     Dosage: 10MG PER DAY
     Dates: end: 20100403
  4. LIPITOR [Concomitant]
     Dosage: 20MG PER DAY
     Dates: end: 20100403
  5. GLUCOPHAGE [Concomitant]
     Dosage: 1000MG PER DAY
     Dates: end: 20100403
  6. REMINYL [Concomitant]
     Indication: DEMENTIA
     Dosage: 8MG PER DAY
     Dates: start: 20100128, end: 20100403
  7. ASPIRIN [Concomitant]
     Dosage: 81MG PER DAY
     Dates: end: 20100403
  8. SEROXAT [Concomitant]
     Indication: DEPRESSION
     Dates: start: 20100128, end: 20100403
  9. ANTICONVULSANTS [Concomitant]

REACTIONS (7)
  - ACUTE CORONARY SYNDROME [None]
  - MUCOSAL ULCERATION [None]
  - MULTI-ORGAN FAILURE [None]
  - MYOCARDIAL INFARCTION [None]
  - RASH [None]
  - SEPTIC SHOCK [None]
  - STEVENS-JOHNSON SYNDROME [None]
